FAERS Safety Report 13238823 (Version 5)
Quarter: 2017Q1

REPORT INFORMATION
  Report Type: Spontaneous
  Country: JP (occurrence: JP)
  Receive Date: 20170216
  Receipt Date: 20170306
  Transmission Date: 20170428
  Serious: Yes (Death, Life-Threatening, Hospitalization, Other)
  Sender: FDA-Public Use
  Company Number: JP-009507513-1702JPN006350

PATIENT
  Age: 71 Year
  Sex: Female
  Weight: 46 kg

DRUGS (2)
  1. DEXAMETHASONE. [Suspect]
     Active Substance: DEXAMETHASONE
     Indication: CONDITION AGGRAVATED
     Dosage: 20 MG / DAY
  2. BORTEZOMIB [Suspect]
     Active Substance: BORTEZOMIB
     Indication: CONDITION AGGRAVATED
     Dosage: UNK

REACTIONS (2)
  - Condition aggravated [Fatal]
  - Treatment failure [Not Recovered/Not Resolved]
